FAERS Safety Report 9382122 (Version 2)
Quarter: 2013Q3

REPORT INFORMATION
  Report Type: Spontaneous
  Country: JP (occurrence: JP)
  Receive Date: 20130703
  Receipt Date: 20130709
  Transmission Date: 20140515
  Serious: Yes (Hospitalization, Other)
  Sender: FDA-Public Use
  Company Number: JP-AMGEN-JPNSP2013041245

PATIENT
  Age: 81 Year
  Sex: Female

DRUGS (5)
  1. ENBREL [Suspect]
     Indication: RHEUMATOID ARTHRITIS
     Dosage: 50 MG, WEEKLY
     Route: 058
     Dates: start: 20120229
  2. ENBREL [Suspect]
     Dosage: 25 MG, 2X/WEEK
     Route: 058
  3. ENBREL [Suspect]
     Dosage: 25 MG, EVERY 5 DAYS
     Route: 058
  4. ENBREL [Suspect]
     Dosage: 25 MG, WEEKLY
     Route: 058
  5. RIMATIL [Concomitant]
     Dosage: UNK
     Route: 048

REACTIONS (12)
  - Muscular weakness [Unknown]
  - Incisional hernia [Unknown]
  - Presbyacusis [Unknown]
  - C-reactive protein abnormal [Recovered/Resolved]
  - Urinary retention [Recovered/Resolved]
  - Pollakiuria [Recovering/Resolving]
  - Glycosylated haemoglobin increased [Unknown]
  - Cataract [Unknown]
  - Mumps [Unknown]
  - Injection site pain [Not Recovered/Not Resolved]
  - Musculoskeletal pain [Unknown]
  - Injection site induration [Unknown]
